FAERS Safety Report 14392985 (Version 1)
Quarter: 2018Q1

REPORT INFORMATION
  Report Type: Spontaneous
  Country: US (occurrence: US)
  Receive Date: 20180116
  Receipt Date: 20180116
  Transmission Date: 20180509
  Serious: No
  Sender: FDA-Public Use
  Company Number: US-NOVOPROD-571700

PATIENT
  Age: 74 Year
  Sex: Female

DRUGS (2)
  1. TRESIBA FLEXTOUCH U200 [Concomitant]
     Active Substance: INSULIN DEGLUDEC
     Indication: DIABETES MELLITUS
     Route: 058
  2. TRESIBA [Suspect]
     Active Substance: INSULIN DEGLUDEC
     Indication: DIABETES MELLITUS
     Dosage: UNK
     Route: 058

REACTIONS (4)
  - Panic attack [Unknown]
  - Drug dose omission [Unknown]
  - Blood glucose decreased [Unknown]
  - Device breakage [Unknown]

NARRATIVE: CASE EVENT DATE: 201711
